FAERS Safety Report 17014563 (Version 5)
Quarter: 2020Q4

REPORT INFORMATION
  Report Type: Report from Study
  Country: None (occurrence: DE)
  Receive Date: 20191111
  Receipt Date: 20201207
  Transmission Date: 20210113
  Serious: Yes (Hospitalization, Other)
  Sender: FDA-Public Use
  Company Number: DE-ABBVIE-19K-062-2993330-00

PATIENT
  Age: 59 Year
  Sex: Male
  Weight: 100 kg

DRUGS (2)
  1. HUMIRA [Suspect]
     Active Substance: ADALIMUMAB
     Indication: PSORIASIS
     Route: 058
     Dates: start: 20110411
  2. HUMIRA [Suspect]
     Active Substance: ADALIMUMAB
     Indication: PSORIATIC ARTHROPATHY

REACTIONS (9)
  - Lumbar spinal stenosis [Recovered/Resolved]
  - Sciatica [Recovered/Resolved]
  - Post procedural complication [Unknown]
  - Intervertebral disc operation [Unknown]
  - Foraminotomy [Unknown]
  - Cervicobrachial syndrome [Recovered/Resolved]
  - Intervertebral disc protrusion [Recovered/Resolved]
  - Vertebral foraminal stenosis [Recovered/Resolved]
  - Muscle atrophy [Recovered/Resolved]

NARRATIVE: CASE EVENT DATE: 2019
